FAERS Safety Report 6531334-2 (Version None)
Quarter: 2010Q1

REPORT INFORMATION
  Report Type: 
  Country: None (occurrence: None)
  Receive Date: 20100108
  Receipt Date: 20090928
  Transmission Date: 20100710
  Serious: No
  Sender: FDA-Public Use
  Company Number: A0805807A

PATIENT
  Age: 60 Year
  Sex: Female

DRUGS (3)
  1. TYKERB [Suspect]
     Indication: BREAST CANCER
     Dosage: 4TAB PER DAY
     Route: 048
     Dates: start: 20090829, end: 20090916
  2. XELODA [Concomitant]
  3. FISH OIL [Concomitant]

REACTIONS (5)
  - ACNE [None]
  - DIARRHOEA [None]
  - FATIGUE [None]
  - PRURITUS [None]
  - RASH [None]
